FAERS Safety Report 8868253 (Version 1)
Quarter: 2012Q4

REPORT INFORMATION
  Report Type: 
  Country: US (occurrence: US)
  Receive Date: 20121025
  Receipt Date: 20121025
  Transmission Date: 20130627
  Serious: No
  Sender: FDA-Public Use
  Company Number: US-AMGEN-USASP2012019416

PATIENT
  Age: 43 Year
  Sex: Female
  Weight: 97.96 kg

DRUGS (6)
  1. ENBREL [Suspect]
     Indication: RHEUMATOID ARTHRITIS
     Dosage: 50 mg, qwk
     Route: 058
     Dates: start: 20111231
  2. PLAQUENIL                          /00072602/ [Concomitant]
     Dosage: 200 mg, UNK
  3. DIOVAN [Concomitant]
     Dosage: 40 mg, UNK
  4. ETODOLAC [Concomitant]
     Dosage: 200 mg, UNK
  5. HYDROCODONE [Concomitant]
  6. HOMATROPIL [Concomitant]

REACTIONS (3)
  - Inflammation [Not Recovered/Not Resolved]
  - Pyrexia [Recovered/Resolved]
  - Upper respiratory tract infection [Recovered/Resolved]
